FAERS Safety Report 11575729 (Version 1)
Quarter: 2015Q3

REPORT INFORMATION
  Report Type: Spontaneous
  Country: US (occurrence: None)
  Receive Date: 20150929
  Receipt Date: 20150929
  Transmission Date: 20151125
  Serious: No
  Sender: FDA-Public Use
  Company Number: None

PATIENT
  Age: 56 Year
  Sex: Female
  Weight: 88 kg

DRUGS (3)
  1. CEFDINIR. [Suspect]
     Active Substance: CEFDINIR
     Indication: MIDDLE EAR EFFUSION
     Route: 048
     Dates: start: 20150925, end: 20150928
  2. TYLENOL [Concomitant]
     Active Substance: ACETAMINOPHEN
  3. CEFDINIR. [Suspect]
     Active Substance: CEFDINIR
     Indication: DIZZINESS
     Route: 048
     Dates: start: 20150925, end: 20150928

REACTIONS (5)
  - Diarrhoea [None]
  - Nausea [None]
  - Migraine [None]
  - Dizziness [None]
  - Muscle spasms [None]

NARRATIVE: CASE EVENT DATE: 20150925
